FAERS Safety Report 24737294 (Version 1)
Quarter: 2024Q4

REPORT INFORMATION
  Report Type: Spontaneous
  Country: US (occurrence: None)
  Receive Date: 20241213
  Receipt Date: 20241213
  Transmission Date: 20250114
  Serious: Yes (unspecified)
  Sender: Public
  Company Number: None

PATIENT
  Age: 51 Year
  Sex: Male
  Weight: 119 kg

DRUGS (1)
  1. ONDANSETRON HYDROCHLORIDE [Suspect]
     Active Substance: ONDANSETRON HYDROCHLORIDE
     Dosage: 4.00 MG ONCE INTRAVENOUS?
     Route: 042
     Dates: start: 20241002, end: 20241002

REACTIONS (1)
  - Angioedema [None]

NARRATIVE: CASE EVENT DATE: 20241002
